FAERS Safety Report 7630928-0 (Version None)
Quarter: 2011Q3

REPORT INFORMATION
  Report Type: 
  Country: None (occurrence: None)
  Receive Date: 20110725
  Receipt Date: 20110714
  Transmission Date: 20111222
  Serious: Yes (Hospitalization)
  Sender: FDA-Public Use
  Company Number: US-BIOGENIDEC-2010BI005339

PATIENT
  Age: 51 Year
  Sex: Female
  Weight: 86 kg

DRUGS (15)
  1. TYSABRI [Suspect]
     Indication: MULTIPLE SCLEROSIS
     Route: 042
     Dates: start: 20091014, end: 20100201
  2. DOCUSATE SODIUM [Concomitant]
     Indication: CONSTIPATION
  3. CYMBALTA [Concomitant]
     Indication: PAIN
  4. PROVIGIL [Concomitant]
  5. VOLTAREN [Concomitant]
     Indication: OPTIC NERVE DISORDER
     Dates: start: 20090831
  6. TRILEPTAL [Concomitant]
     Indication: HYPOAESTHESIA
  7. PB8 [PROBIOTIC] [Concomitant]
     Indication: CANDIDIASIS
     Dates: start: 20080101
  8. MULTI-VITAMIN [Concomitant]
  9. TRAMADOL HCL [Concomitant]
     Indication: SKIN BURNING SENSATION
  10. DEMEROL [Concomitant]
     Indication: MIGRAINE
  11. MUSCLE RELAXER (NOS) [Concomitant]
  12. CYMBALTA [Concomitant]
     Indication: ANXIETY
  13. CYMBALTA [Concomitant]
     Indication: DEPRESSION
  14. PHENERGAN HCL [Concomitant]
     Indication: NAUSEA
  15. METAMUCIL-2 [Concomitant]

REACTIONS (31)
  - BODY TEMPERATURE INCREASED [None]
  - APHASIA [None]
  - MENTAL IMPAIRMENT [None]
  - DEHYDRATION [None]
  - MUSCLE TWITCHING [None]
  - NAUSEA [None]
  - DECREASED IMMUNE RESPONSIVENESS [None]
  - NERVOUS SYSTEM DISORDER [None]
  - HYPOAESTHESIA [None]
  - DYSKINESIA [None]
  - BRONCHITIS [None]
  - BLADDER PROLAPSE [None]
  - DRUG HYPERSENSITIVITY [None]
  - MUSCULAR WEAKNESS [None]
  - MUSCLE SPASMS [None]
  - LICHEN SCLEROSUS [None]
  - HYPERTENSION [None]
  - DIARRHOEA [None]
  - COAGULOPATHY [None]
  - INCONTINENCE [None]
  - ANXIETY [None]
  - FATIGUE [None]
  - SKIN BURNING SENSATION [None]
  - DEPRESSION [None]
  - PNEUMONIA [None]
  - UTERINE PROLAPSE [None]
  - MULTIPLE SCLEROSIS RELAPSE [None]
  - VOMITING [None]
  - COGNITIVE DISORDER [None]
  - WEIGHT INCREASED [None]
  - ABDOMINAL PAIN LOWER [None]
